FAERS Safety Report 6361528-0 (Version None)
Quarter: 2009Q3

REPORT INFORMATION
  Report Type: 
  Country: None (occurrence: None)
  Receive Date: 20090915
  Receipt Date: 20090915
  Transmission Date: 20100115
  Serious: No
  Sender: FDA-Public Use
  Company Number: None

PATIENT
  Age: 10 Year
  Sex: Male
  Weight: 27.2158 kg

DRUGS (1)
  1. AMOXICILLIN [Suspect]
     Indication: PHARYNGITIS
     Dosage: 1 TABLET 3 TIMES DAILY
     Dates: start: 20090210, end: 20090215

REACTIONS (2)
  - GRIP STRENGTH DECREASED [None]
  - URTICARIA [None]
